FAERS Safety Report 14734154 (Version 3)
Quarter: 2018Q2

REPORT INFORMATION
  Report Type: Spontaneous
  Country: PL (occurrence: PL)
  Receive Date: 20180409
  Receipt Date: 20180514
  Transmission Date: 20180711
  Serious: Yes (Hospitalization, Other)
  Sender: FDA-Public Use
  Company Number: PHHY2015PL177676

PATIENT
  Age: 68 Year
  Sex: Female

DRUGS (3)
  1. TACROLIMUS. [Suspect]
     Active Substance: TACROLIMUS
     Indication: IMMUNOSUPPRESSION
     Dosage: 0.2 MG/KG, QD
     Route: 065
  2. MYCOPHENOLATE MOFETIL. [Suspect]
     Active Substance: MYCOPHENOLATE MOFETIL
     Indication: RENAL TRANSPLANT
     Dosage: 2 G, QD
     Route: 065
  3. MYCOPHENOLATE MOFETIL. [Suspect]
     Active Substance: MYCOPHENOLATE MOFETIL
     Dosage: 1 G, UNK
     Route: 065

REACTIONS (9)
  - Sinus tachycardia [Unknown]
  - Complications of transplanted kidney [Recovered/Resolved]
  - Drug level increased [Recovered/Resolved]
  - Bundle branch block left [Recovering/Resolving]
  - Stress cardiomyopathy [Recovered/Resolved]
  - Hypertension [Unknown]
  - Toxicity to various agents [Recovering/Resolving]
  - Hypotonia [Recovered/Resolved]
  - Chest pain [Recovered/Resolved]
